FAERS Safety Report 13715444 (Version 5)
Quarter: 2019Q3

REPORT INFORMATION
  Report Type: Report from Study
  Country: None (occurrence: CA)
  Receive Date: 20170704
  Receipt Date: 20190809
  Transmission Date: 20191004
  Serious: Yes (Death, Hospitalization, Other)
  Sender: FDA-Public Use
  Company Number: CA-ABBVIE-17K-028-2027848-00

PATIENT
  Age: 76 Year
  Sex: Male
  Weight: 70.8 kg

DRUGS (3)
  1. DUODOPA [Suspect]
     Active Substance: CARBIDOPA\LEVODOPA
     Indication: PARKINSON^S DISEASE
     Dosage: DOSE: 20MG/ML?MORNING BOLUS: 8 ML?CONTINUOUS DOSE RATE: 4.2 ML/H?EXTRA DOSE: 1 ML
     Route: 050
     Dates: start: 20161212, end: 201612
  2. LASIX [Concomitant]
     Active Substance: FUROSEMIDE
     Indication: PRODUCT USED FOR UNKNOWN INDICATION
  3. DUODOPA [Suspect]
     Active Substance: CARBIDOPA\LEVODOPA
     Dosage: MORNING BOLUS: 0 ML?CONTINUOUS DOSE RATE 4.3 ML/HOUR?EXTRA BOLUS AMOUNT: 2 ML
     Route: 050
     Dates: start: 20161214, end: 201808

REACTIONS (7)
  - Cardiac failure congestive [Fatal]
  - Mitral valve incompetence [Recovered/Resolved]
  - Patient dissatisfaction with treatment [Unknown]
  - Chest discomfort [Unknown]
  - Pleural effusion [Unknown]
  - Tinnitus [Unknown]
  - Complication associated with device [Recovered/Resolved]

NARRATIVE: CASE EVENT DATE: 201705
